FAERS Safety Report 9767402 (Version 1)
Quarter: 2013Q4

REPORT INFORMATION
  Report Type: Spontaneous
  Country: GR (occurrence: GR)
  Receive Date: 20131217
  Receipt Date: 20131217
  Transmission Date: 20140711
  Serious: Yes (Other)
  Sender: FDA-Public Use
  Company Number: GR-ASTELLAS-2013EU011022

PATIENT
  Sex: Female

DRUGS (6)
  1. PROGRAF [Suspect]
     Indication: IMMUNOSUPPRESSION
     Dosage: UNK
     Route: 048
  2. CYMEVENE /00784201/ [Suspect]
     Indication: IMMUNOSUPPRESSION
     Dosage: UNK
     Route: 042
  3. CYMEVENE /00784201/ [Suspect]
     Indication: ANTIVIRAL PROPHYLAXIS
  4. VALCYTE [Suspect]
     Indication: IMMUNOSUPPRESSION
     Dosage: UNK
     Route: 048
  5. CELLCEPT                           /01275102/ [Concomitant]
     Dosage: UNK
     Route: 065
  6. CORTIZONE                          /00028601/ [Concomitant]
     Dosage: UNK
     Route: 065

REACTIONS (3)
  - Growth retardation [Unknown]
  - Gastrointestinal viral infection [Unknown]
  - Immunosuppressant drug level increased [Unknown]
